FAERS Safety Report 6126188-2 (Version None)
Quarter: 2009Q1

REPORT INFORMATION
  Report Type: 
  Country: None (occurrence: None)
  Receive Date: 20090320
  Receipt Date: 20090316
  Transmission Date: 20090719
  Serious: Yes (Other)
  Sender: FDA-Public Use
  Company Number: B0563651A

PATIENT
  Age: 6 Year
  Sex: Female

DRUGS (5)
  1. RELENZA [Suspect]
     Indication: INFLUENZA
     Dosage: 10MG TWICE PER DAY
     Route: 055
     Dates: start: 20090302, end: 20090306
  2. ASVERIN [Concomitant]
     Indication: INFLUENZA
     Dosage: 60MG PER DAY
     Route: 048
  3. PERIACTIN [Concomitant]
     Indication: INFLUENZA
     Dosage: 501MG PER DAY
     Route: 048
  4. MUCODYNE [Concomitant]
     Indication: INFLUENZA
     Dosage: 600MG PER DAY
     Route: 048
  5. CALONAL [Concomitant]
     Indication: INFLUENZA
     Route: 048

REACTIONS (2)
  - EPISTAXIS [None]
  - LARYNGEAL HAEMORRHAGE [None]
